FAERS Safety Report 5016454-6 (Version None)
Quarter: 2006Q2

REPORT INFORMATION
  Report Type: 
  Country: None (occurrence: None)
  Receive Date: 20060531
  Receipt Date: 20060531
  Transmission Date: 20061013
  Serious: Yes (Hospitalization)
  Sender: FDA-Public Use
  Company Number: None

PATIENT
  Age: 62 Year
  Sex: Male
  Weight: 101.1521 kg

DRUGS (15)
  1. MOXIFLOXACIN HCL [Suspect]
     Dosage: 400 MG DAILY
  2. LINEZOLID [Suspect]
     Dosage: 600 MG DAILY
  3. DILTIAZEM [Concomitant]
  4. DOCUSATE [Concomitant]
  5. FERROUS GLUCONATE [Concomitant]
  6. NIASPAN ER [Concomitant]
  7. PHENAZOPYRIDINE [Concomitant]
  8. PROCHLORPERAZINE [Concomitant]
  9. WARFARIN SODIUM [Concomitant]
  10. AMIODARONE [Concomitant]
  11. SIMVASTATIN [Concomitant]
  12. METFORMIN [Concomitant]
  13. FUROSEMIDE [Concomitant]
  14. DILTIAZEM [Concomitant]
  15. METOPROLOL [Concomitant]

REACTIONS (5)
  - DIARRHOEA [None]
  - HYPOTENSION [None]
  - RENAL IMPAIRMENT [None]
  - VOMITING [None]
  - WOUND INFECTION [None]
